FAERS Safety Report 24932614 (Version 1)
Quarter: 2025Q1

REPORT INFORMATION
  Report Type: Report from Study
  Country: US (occurrence: US)
  Receive Date: 20250205
  Receipt Date: 20250205
  Transmission Date: 20250408
  Serious: No
  Sender: EXELIXIS
  Company Number: US-EXELIXIS-EXL-2024-000219

PATIENT
  Sex: Male

DRUGS (5)
  1. CABOMETYX [Suspect]
     Active Substance: CABOZANTINIB S-MALATE
     Indication: Renal cancer
     Route: 048
  2. CABOMETYX [Suspect]
     Active Substance: CABOZANTINIB S-MALATE
     Dosage: 40 MG, QD
     Route: 048
     Dates: end: 20241001
  3. CABOMETYX [Suspect]
     Active Substance: CABOZANTINIB S-MALATE
     Dosage: 40 MG, QD (MONDAY- THURSDAY-FRIDAY)
     Route: 048
  4. CABOMETYX [Suspect]
     Active Substance: CABOZANTINIB S-MALATE
     Dosage: 40 MG, QD
     Route: 048
  5. CABOMETYX [Suspect]
     Active Substance: CABOZANTINIB S-MALATE
     Dosage: 20 MG, QD
     Route: 048
     Dates: start: 20241202

REACTIONS (16)
  - Peripheral swelling [Unknown]
  - Drug intolerance [Unknown]
  - Blood pressure increased [Unknown]
  - Fatigue [Recovering/Resolving]
  - Weight decreased [Unknown]
  - Pain in extremity [Unknown]
  - Dysphonia [Unknown]
  - Diarrhoea [Unknown]
  - Nausea [Unknown]
  - Stomatitis [Unknown]
  - Decreased appetite [Unknown]
  - Hunger [Unknown]
  - Gait disturbance [Unknown]
  - Inappropriate schedule of product administration [Unknown]
  - Product prescribing issue [Unknown]
  - Product dose omission issue [Unknown]
